FAERS Safety Report 9417095 (Version 1)
Quarter: 2013Q3

REPORT INFORMATION
  Report Type: Spontaneous
  Country: FR (occurrence: None)
  Receive Date: 20130722
  Receipt Date: 20130722
  Transmission Date: 20140515
  Serious: Yes (Hospitalization)
  Sender: FDA-Public Use
  Company Number: 1754135

PATIENT
  Age: 74 Year
  Sex: Male

DRUGS (18)
  1. CARBOPLATIN [Suspect]
     Indication: SQUAMOUS CELL CARCINOMA OF LUNG
     Route: 041
     Dates: start: 20111103
  2. TAXOL [Suspect]
     Indication: SQUAMOUS CELL CARCINOMA OF LUNG
     Route: 041
     Dates: start: 20111103
  3. NEORAL [Concomitant]
  4. SOLUPRED [Concomitant]
  5. DIAMICRON [Concomitant]
  6. SPIRIVA [Concomitant]
  7. SYMBICORT [Concomitant]
  8. TAHOR [Concomitant]
  9. PERINDOPRIL [Concomitant]
  10. FOSAMAX [Concomitant]
  11. CALCIUM WITH VITAMIN D3 [Concomitant]
  12. MOPRAL [Concomitant]
  13. ACTRAPID [Concomitant]
  14. PRIMEPERAN [Concomitant]
  15. PLAVIX [Concomitant]
  16. AZANTAC [Concomitant]
  17. POLARAMINE [Concomitant]
  18. ZOPHREN [Concomitant]

REACTIONS (6)
  - Neuromyopathy [None]
  - Gait disturbance [None]
  - Confusional state [None]
  - Lung infection [None]
  - Cardiopulmonary failure [None]
  - General physical health deterioration [None]
